FAERS Safety Report 14551491 (Version 1)
Quarter: 2018Q1

REPORT INFORMATION
  Report Type: Spontaneous
  Country: GB (occurrence: GB)
  Receive Date: 20180220
  Receipt Date: 20180220
  Transmission Date: 20180509
  Serious: Yes (Hospitalization)
  Sender: FDA-Public Use
  Company Number: GB-CONCORDIA PHARMACEUTICALS INC.-E2B_00009965

PATIENT
  Age: 54 Year
  Sex: Female
  Weight: 85.6 kg

DRUGS (17)
  1. METFORMIN HYDROCHLORIDE. [Concomitant]
     Active Substance: METFORMIN HYDROCHLORIDE
  2. FLUTICASONE. [Concomitant]
     Active Substance: FLUTICASONE
  3. GLICLAZIDE [Concomitant]
     Active Substance: GLICLAZIDE
  4. ZOPICLONE [Concomitant]
     Active Substance: ZOPICLONE
  5. LANSOPRAZOLE. [Concomitant]
     Active Substance: LANSOPRAZOLE
  6. SERTRALINE [Concomitant]
     Active Substance: SERTRALINE HYDROCHLORIDE
  7. FERROUS FUMARATE [Concomitant]
     Active Substance: FERROUS FUMARATE
  8. VILANTEROL [Concomitant]
     Active Substance: VILANTEROL TRIFENATATE
  9. SITAGLIPTIN [Concomitant]
     Active Substance: SITAGLIPTIN
  10. FULTIUM-D3 [Concomitant]
     Active Substance: CHOLECALCIFEROL
  11. MONTELUKAST [Concomitant]
     Active Substance: MONTELUKAST SODIUM
  12. LEVOTHYROXINE SODIUM. [Concomitant]
     Active Substance: LEVOTHYROXINE SODIUM
  13. UMECLIDINIUM [Concomitant]
     Active Substance: UMECLIDINIUM BROMIDE
  14. PARACETAMOL [Concomitant]
     Active Substance: ACETAMINOPHEN
  15. PREDNISOLONE. [Suspect]
     Active Substance: PREDNISOLONE
     Indication: CHRONIC OBSTRUCTIVE PULMONARY DISEASE
     Dosage: REDUCING COURSE, 50MG FOR 5 DAYS, THEN 30MG FOR 5 DAYS AND THEN REDUCING BY 5MG EVERY 5 DAYS UNTIL 0
     Route: 048
     Dates: start: 20180101, end: 20180116
  16. DAPAGLIFLOZIN. [Concomitant]
     Active Substance: DAPAGLIFLOZIN
  17. ATORVASTATIN [Concomitant]
     Active Substance: ATORVASTATIN

REACTIONS (4)
  - Cough [Unknown]
  - Abdominal pain [Unknown]
  - Pancreatitis acute [Recovering/Resolving]
  - Dyspnoea [Unknown]

NARRATIVE: CASE EVENT DATE: 20180101
